FAERS Safety Report 15194263 (Version 1)
Quarter: 2018Q3

REPORT INFORMATION
  Report Type: Spontaneous
  Country: US (occurrence: US)
  Receive Date: 20180626
  Receipt Date: 20180626
  Transmission Date: 20181010
  Serious: Yes (Other)
  Sender: FDA-Public Use
  Company Number: None

PATIENT
  Age: 66 Year
  Sex: Male
  Weight: 65 kg

DRUGS (16)
  1. METOPROLOL. [Concomitant]
     Active Substance: METOPROLOL
  2. PANTOPRAZOLE [Concomitant]
     Active Substance: PANTOPRAZOLE
  3. MELATONIN [Concomitant]
     Active Substance: MELATONIN
  4. PREDNISONE. [Concomitant]
     Active Substance: PREDNISONE
  5. ZOFRAN [Concomitant]
     Active Substance: ONDANSETRON HYDROCHLORIDE
  6. METFORMIN [Concomitant]
     Active Substance: METFORMIN HYDROCHLORIDE
  7. PROTONIX [Concomitant]
     Active Substance: PANTOPRAZOLE SODIUM
  8. SENNA [Concomitant]
     Active Substance: SENNA LEAF\SENNOSIDES\SENNOSIDES A AND B
  9. ZANTAC [Concomitant]
     Active Substance: RANITIDINE HYDROCHLORIDE
  10. INLYTA [Suspect]
     Active Substance: AXITINIB
     Indication: CHRONIC LYMPHOCYTIC LEUKAEMIA
     Route: 048
     Dates: start: 20180607
  11. LISINOPRIL. [Concomitant]
     Active Substance: LISINOPRIL
  12. MAGNESIUM [Concomitant]
     Active Substance: MAGNESIUM
  13. NYSTATIN. [Concomitant]
     Active Substance: NYSTATIN
  14. TRADJENTA [Concomitant]
     Active Substance: LINAGLIPTIN
  15. MEGESTROL [Concomitant]
     Active Substance: MEGESTROL
  16. PHOSPHOROUS [Concomitant]

REACTIONS (2)
  - Joint swelling [None]
  - Peripheral swelling [None]
